FAERS Safety Report 19459458 (Version 1)
Quarter: 2021Q2

REPORT INFORMATION
  Report Type: Spontaneous
  Country: US (occurrence: US)
  Receive Date: 20210625
  Receipt Date: 20210625
  Transmission Date: 20210717
  Serious: No
  Sender: FDA-Public Use
  Company Number: None

PATIENT
  Age: 65 Year
  Sex: Female
  Weight: 62.1 kg

DRUGS (2)
  1. ROSUVASTIN [Concomitant]
     Active Substance: ROSUVASTATIN
  2. ZOLPIDEM [Suspect]
     Active Substance: ZOLPIDEM TARTRATE
     Indication: INSOMNIA
     Dosage: ?          QUANTITY:.25 TABLET(S);?
     Route: 048

REACTIONS (2)
  - Panic attack [None]
  - Heart rate increased [None]

NARRATIVE: CASE EVENT DATE: 20201118
